FAERS Safety Report 19398136 (Version 2)
Quarter: 2021Q2

REPORT INFORMATION
  Report Type: Spontaneous
  Country: CN (occurrence: CN)
  Receive Date: 20210610
  Receipt Date: 20210621
  Transmission Date: 20210717
  Serious: Yes (Other)
  Sender: FDA-Public Use
  Company Number: CN-PFIZER INC-2021640195

PATIENT
  Age: 63 Year
  Sex: Male

DRUGS (2)
  1. METHOTREXATE. [Suspect]
     Active Substance: METHOTREXATE
     Indication: HODGKIN^S DISEASE
     Dosage: 3000 MG/M2, 1X/DAY, DAY 1
     Route: 042
  2. CYTARABINE. [Suspect]
     Active Substance: CYTARABINE
     Indication: HODGKIN^S DISEASE
     Dosage: 1000 MG/M2, FREQ:12 H;DAYS 2+3
     Route: 042

REACTIONS (4)
  - Nephropathy toxic [Unknown]
  - Myelosuppression [Unknown]
  - Off label use [Unknown]
  - Acute kidney injury [Unknown]
